FAERS Safety Report 25310272 (Version 1)
Quarter: 2025Q2

REPORT INFORMATION
  Report Type: Spontaneous
  Country: IN (occurrence: IN)
  Receive Date: 20250514
  Receipt Date: 20250514
  Transmission Date: 20250716
  Serious: Yes (Hospitalization, Other)
  Sender: RISING PHARMACEUTICALS
  Company Number: IN-RISINGPHARMA-IN-2025RISLIT00234

PATIENT
  Age: 6 Decade
  Sex: Male

DRUGS (1)
  1. METRONIDAZOLE [Suspect]
     Active Substance: METRONIDAZOLE
     Indication: Hepatic amoebiasis
     Dosage: CUMULATIVE DOSE OF NEARLY 140G
     Route: 065

REACTIONS (20)
  - Toxic encephalopathy [Recovering/Resolving]
  - Dysarthria [Recovering/Resolving]
  - Fall [Recovering/Resolving]
  - Gait disturbance [Recovering/Resolving]
  - Sensory disturbance [Recovering/Resolving]
  - Tremor [Recovering/Resolving]
  - Polyneuropathy [Recovering/Resolving]
  - Loss of proprioception [Recovering/Resolving]
  - Myelopathy [Recovering/Resolving]
  - Toxic neuropathy [Recovering/Resolving]
  - Neuropathy peripheral [Recovering/Resolving]
  - Paraesthesia [Recovering/Resolving]
  - Body temperature decreased [Recovering/Resolving]
  - Parkinson^s disease [Recovering/Resolving]
  - Multiple sclerosis [Recovering/Resolving]
  - Vertebrobasilar stroke [Recovering/Resolving]
  - Transient ischaemic attack [Recovering/Resolving]
  - Toxicity to various agents [Recovering/Resolving]
  - Skin hyperpigmentation [Recovering/Resolving]
  - Overdose [Unknown]
